FAERS Safety Report 6070458-3 (Version None)
Quarter: 2009Q1

REPORT INFORMATION
  Report Type: 
  Country: None (occurrence: None)
  Receive Date: 20090209
  Receipt Date: 20090127
  Transmission Date: 20090719
  Serious: Yes (Other)
  Sender: FDA-Public Use
  Company Number: DE-CELGENEUS-062-21880-09011408

PATIENT
  Sex: Female
  Weight: 70 kg

DRUGS (1)
  1. REVLIMID [Suspect]
     Indication: MULTIPLE MYELOMA
     Route: 048
     Dates: start: 20080917, end: 20081007

REACTIONS (4)
  - ANAEMIA [None]
  - NEUTROPENIA [None]
  - STOMATITIS [None]
  - URINARY TRACT INFECTION [None]
